FAERS Safety Report 4701703-1 (Version None)
Quarter: 2005Q2

REPORT INFORMATION
  Report Type: 
  Country: None (occurrence: None)
  Receive Date: 20050628
  Receipt Date: 20050622
  Transmission Date: 20051028
  Serious: Yes (Death, Hospitalization)
  Sender: FDA-Public Use
  Company Number: PHBS2005JP08938

PATIENT
  Age: 62 Year
  Sex: Female

DRUGS (8)
  1. TEGRETOL [Suspect]
     Indication: CONVULSION
     Dosage: 200 MG, BID
     Route: 048
     Dates: start: 20020717, end: 20021223
  2. ALEVIATIN [Suspect]
     Indication: CONVULSION
     Dosage: 1 G, BID
     Route: 048
     Dates: start: 20010623, end: 20020716
  3. GASTER D [Concomitant]
     Dosage: 20 MG/DAY
     Route: 048
     Dates: end: 20020623
  4. EPAND [Concomitant]
     Dosage: 6 DF/DAY
     Route: 048
     Dates: end: 20020623
  5. ZANTAC [Concomitant]
     Dosage: 150 MG/DAY
     Route: 048
     Dates: end: 20020624
  6. EPADEL [Concomitant]
     Dosage: 6 DF/DAY
     Route: 048
     Dates: start: 20020624
  7. AMARYL [Concomitant]
     Indication: DIABETES MELLITUS
     Dosage: 1 MG/DAY
     Route: 048
     Dates: start: 20020624
  8. MYSTAN AZWELL [Concomitant]
     Dosage: 10 MG/DAY
     Route: 065

REACTIONS (6)
  - HUMORAL IMMUNE DEFECT [None]
  - HYPOGAMMAGLOBULINAEMIA [None]
  - INFECTION [None]
  - PNEUMONIA [None]
  - PNEUMONIA ASPIRATION [None]
  - VOMITING [None]
